FAERS Safety Report 26063406 (Version 1)
Quarter: 2025Q4

REPORT INFORMATION
  Report Type: Spontaneous
  Country: US (occurrence: US)
  Receive Date: 20251119
  Receipt Date: 20251119
  Transmission Date: 20260117
  Serious: No
  Sender: BRISTOL-MYERS SQUIBB COMPANY
  Company Number: US-BRISTOL-MYERS SQUIBB COMPANY-2025-156625

PATIENT
  Age: 75 Year
  Sex: Female

DRUGS (2)
  1. ELIQUIS [Suspect]
     Active Substance: APIXABAN
     Indication: Product used for unknown indication
  2. TRYPTYR [Suspect]
     Active Substance: ACOLTREMON
     Indication: Product used for unknown indication

REACTIONS (4)
  - Dry mouth [Unknown]
  - Dyspnoea [Unknown]
  - Palpitations [Unknown]
  - Dysgeusia [Unknown]
